FAERS Safety Report 15293531 (Version 1)
Quarter: 2018Q4

REPORT INFORMATION
  Report Type: Spontaneous
  Country: KR (occurrence: KR)
  Receive Date: 20180820
  Receipt Date: 20180820
  Transmission Date: 20190204
  Serious: Yes (Other)
  Sender: FDA-Public Use
  Company Number: KR-TEVA-2018-KR-945650

PATIENT
  Age: 13 Year
  Sex: Male
  Weight: 67.8 kg

DRUGS (2)
  1. SOMATROGON [Suspect]
     Active Substance: SOMATROGON
     Indication: PRECOCIOUS PUBERTY
     Route: 065
  2. LETROZOLE. [Suspect]
     Active Substance: LETROZOLE
     Indication: PRECOCIOUS PUBERTY
     Dosage: 2.5 MILLIGRAM DAILY;
     Route: 065

REACTIONS (1)
  - Epiphysiolysis [Unknown]
